FAERS Safety Report 15648794 (Version 2)
Quarter: 2019Q1

REPORT INFORMATION
  Report Type: Spontaneous
  Country: GB (occurrence: GB)
  Receive Date: 20181122
  Receipt Date: 20190111
  Transmission Date: 20190417
  Serious: Yes (Other)
  Sender: FDA-Public Use
  Company Number: GB-TEVA-2018-GB-977684

PATIENT
  Age: 43 Year
  Sex: Male
  Weight: 70 kg

DRUGS (3)
  1. PRIADEL [Suspect]
     Active Substance: LITHIUM
     Indication: MAJOR DEPRESSION
     Route: 048
     Dates: start: 20170101
  2. MIRTAZAPINE. [Suspect]
     Active Substance: MIRTAZAPINE
     Indication: MAJOR DEPRESSION
     Route: 048
     Dates: start: 20181004, end: 20181023
  3. VENLAFAXINE [Suspect]
     Active Substance: VENLAFAXINE HYDROCHLORIDE
     Indication: MAJOR DEPRESSION
     Route: 048
     Dates: start: 20160301

REACTIONS (5)
  - Disturbance in attention [Recovered/Resolved]
  - Tremor [Recovered/Resolved]
  - Hypertonia [Recovered/Resolved]
  - Serotonin syndrome [Recovered/Resolved]
  - Agitation [Recovered/Resolved]

NARRATIVE: CASE EVENT DATE: 20181015
